FAERS Safety Report 17723989 (Version 2)
Quarter: 2020Q2

REPORT INFORMATION
  Report Type: Report from Study
  Country: US (occurrence: US)
  Receive Date: 20200429
  Receipt Date: 20200601
  Transmission Date: 20200714
  Serious: Yes (Other)
  Sender: FDA-Public Use
  Company Number: US-PFIZER INC-2020005593

PATIENT
  Age: 55 Year
  Sex: Female

DRUGS (2)
  1. LETROZOLE. [Suspect]
     Active Substance: LETROZOLE
     Dosage: UNK
  2. IBRANCE [Suspect]
     Active Substance: PALBOCICLIB
     Indication: BREAST CANCER FEMALE
     Dosage: 125 MG, CYCLIC (ONCE DAILY 21 DAYS OF A 28-DAY CYCLE)/[DAILY TIMES 21 DAYS, 7 DAYS OFF]
     Route: 048
     Dates: start: 20191213

REACTIONS (8)
  - Chills [Unknown]
  - Noninfective gingivitis [Recovered/Resolved]
  - Pyrexia [Unknown]
  - White blood cell count decreased [Unknown]
  - Nausea [Recovered/Resolved]
  - Gingival ulceration [Recovered/Resolved]
  - Stomatitis [Recovering/Resolving]
  - Constipation [Recovering/Resolving]
